FAERS Safety Report 22266236 (Version 1)
Quarter: 2023Q2

REPORT INFORMATION
  Report Type: Spontaneous
  Country: US (occurrence: US)
  Receive Date: 20230428
  Receipt Date: 20230428
  Transmission Date: 20230722
  Serious: Yes (Hospitalization, Disabling)
  Sender: FDA-Public Use
  Company Number: US-MYLANLABS-2023M1044812

PATIENT
  Age: 40 Year
  Sex: Male

DRUGS (1)
  1. FENTANYL [Suspect]
     Active Substance: FENTANYL
     Indication: Neck pain
     Dosage: UNK
     Route: 042

REACTIONS (3)
  - Osteomyelitis [Not Recovered/Not Resolved]
  - Drug ineffective [Unknown]
  - Quadriplegia [Not Recovered/Not Resolved]
